FAERS Safety Report 4545390-4 (Version None)
Quarter: 2005Q1

REPORT INFORMATION
  Report Type: 
  Country: None (occurrence: None)
  Receive Date: 20050103
  Receipt Date: 20041216
  Transmission Date: 20050727
  Serious: Yes (Life-Threatening, Other)
  Sender: FDA-Public Use
  Company Number: GBWYE291220DEC04

PATIENT
  Age: 28 Year
  Sex: Female

DRUGS (7)
  1. EFFEXOR [Suspect]
     Indication: DEPRESSION
     Dosage: SEE IMAGE
     Route: 048
     Dates: start: 20040611, end: 20040831
  2. VALPROATE SODIUM [Concomitant]
  3. CO-CODAMOL (CODEINE PHOSPHATE/PARACETAMOL) [Concomitant]
  4. ZOPICLONE (ZOPICLONE) [Concomitant]
  5. PRIMIDONE [Concomitant]
  6. CLOBAZAM (CLOBAZAM) [Concomitant]
  7. PROPRANOLOL [Concomitant]

REACTIONS (7)
  - ASTHENIA [None]
  - CONVULSION [None]
  - DRUG INTERACTION [None]
  - FALL [None]
  - LETHARGY [None]
  - RESTLESSNESS [None]
  - TREMOR [None]
